FAERS Safety Report 7445884-8 (Version None)
Quarter: 2011Q2

REPORT INFORMATION
  Report Type: 
  Country: None (occurrence: None)
  Receive Date: 20110429
  Receipt Date: 20100610
  Transmission Date: 20111010
  Serious: No
  Sender: FDA-Public Use
  Company Number: US-ASTRAZENECA-2010SE27004

PATIENT
  Sex: Male

DRUGS (3)
  1. PRILOSEC [Suspect]
     Route: 048
  2. NEXIUM [Suspect]
     Indication: GASTROOESOPHAGEAL REFLUX DISEASE
     Route: 048
  3. PANTOPRAZOLE [Concomitant]
     Indication: OESOPHAGEAL DISORDER

REACTIONS (3)
  - EXPIRED DRUG ADMINISTERED [None]
  - HEADACHE [None]
  - OESOPHAGEAL DILATATION [None]
